FAERS Safety Report 5216204-4 (Version None)
Quarter: 2007Q1

REPORT INFORMATION
  Report Type: 
  Country: None (occurrence: None)
  Receive Date: 20070123
  Receipt Date: 20070111
  Transmission Date: 20070707
  Serious: Yes (Disabling, Other)
  Sender: FDA-Public Use
  Company Number: US-PFIZER INC-2006135756

PATIENT
  Sex: Female

DRUGS (5)
  1. DEPO-MEDROL [Suspect]
     Indication: SCIATICA
     Dosage: DAILY DOSE:80MG
     Route: 008
     Dates: start: 20000126, end: 20000209
  2. NEURONTIN [Suspect]
     Indication: SCIATICA
     Route: 048
     Dates: start: 20000101, end: 20000101
  3. LYRICA [Suspect]
     Indication: SCIATICA
     Route: 048
     Dates: start: 20060801, end: 20060901
  4. BEXTRA [Suspect]
     Indication: PAIN
  5. CELEBREX [Suspect]
     Indication: PAIN

REACTIONS (19)
  - ARACHNOIDITIS [None]
  - BACK PAIN [None]
  - BLADDER DISORDER [None]
  - BLOOD CHOLESTEROL INCREASED [None]
  - COGNITIVE DISORDER [None]
  - DEPRESSION [None]
  - DISABILITY [None]
  - DRUG INEFFECTIVE [None]
  - HYPOAESTHESIA [None]
  - INTESTINAL FUNCTIONAL DISORDER [None]
  - MUSCLE SPASMS [None]
  - NERVE INJURY [None]
  - PAIN IN EXTREMITY [None]
  - RHINORRHOEA [None]
  - SOMNOLENCE [None]
  - VISUAL DISTURBANCE [None]
  - VOMITING [None]
  - WEIGHT INCREASED [None]
  - WHITE BLOOD CELL COUNT INCREASED [None]
